FAERS Safety Report 9636043 (Version 2)
Quarter: 2013Q4

REPORT INFORMATION
  Report Type: Spontaneous
  Country: US (occurrence: US)
  Receive Date: 20131021
  Receipt Date: 20131211
  Transmission Date: 20140711
  Serious: Yes (Hospitalization, Other)
  Sender: FDA-Public Use
  Company Number: US-JNJFOC-20131008848

PATIENT
  Age: 80 Year
  Sex: Female

DRUGS (7)
  1. SIMPONI [Suspect]
     Indication: RHEUMATOID ARTHRITIS
     Route: 058
     Dates: start: 200907, end: 201309
  2. METHOTREXATE [Concomitant]
     Route: 065
  3. SIMVASTATIN [Concomitant]
     Indication: LIPIDS INCREASED
     Route: 065
  4. METOPROLOL [Concomitant]
     Indication: HYPERTENSION
     Route: 065
  5. PROLIXIN [Concomitant]
     Route: 065
  6. JANUVIA [Concomitant]
     Indication: DIABETES MELLITUS
     Route: 065
  7. LISINOPRIL [Concomitant]
     Route: 065

REACTIONS (3)
  - Knee arthroplasty [Unknown]
  - Osteomyelitis [Unknown]
  - Device related infection [Recovered/Resolved]
